FAERS Safety Report 10978189 (Version 2)
Quarter: 2015Q3

REPORT INFORMATION
  Report Type: Spontaneous
  Country: FR (occurrence: FR)
  Receive Date: 20150402
  Receipt Date: 20150904
  Transmission Date: 20151125
  Serious: Yes (Life-Threatening, Hospitalization, Disabling, Other)
  Sender: FDA-Public Use
  Company Number: FR-PFIZER INC-2015108289

PATIENT
  Age: 1 Month
  Sex: Male

DRUGS (2)
  1. REVATIO [Suspect]
     Active Substance: SILDENAFIL CITRATE
     Indication: PULMONARY ARTERIAL HYPERTENSION
     Dosage: 4 MG, 4X/DAY
     Route: 048
     Dates: start: 201407
  2. NUBAIN [Suspect]
     Active Substance: NALBUPHINE HYDROCHLORIDE
     Dosage: 0.1 MG/ML, DAILY (LESS THAN 0.1 MG/ML OVER 24 HOURS)
     Route: 040
     Dates: start: 20141228, end: 20141228

REACTIONS (9)
  - Injection site oedema [Recovered/Resolved with Sequelae]
  - Haemorrhage [Unknown]
  - Injection site reaction [Recovered/Resolved with Sequelae]
  - Peripheral ischaemia [Recovered/Resolved with Sequelae]
  - Vasospasm [Unknown]
  - Extravasation [Recovered/Resolved with Sequelae]
  - Extremity necrosis [Recovered/Resolved with Sequelae]
  - Bacterial infection [Unknown]
  - Off label use [Not Recovered/Not Resolved]

NARRATIVE: CASE EVENT DATE: 201407
